FAERS Safety Report 11118284 (Version 2)
Quarter: 2015Q2

REPORT INFORMATION
  Report Type: Spontaneous
  Country: US (occurrence: US)
  Receive Date: 20150518
  Receipt Date: 20150522
  Transmission Date: 20150821
  Serious: Yes (Hospitalization, Disabling, Other)
  Sender: FDA-Public Use
  Company Number: US-009507513-1204USA00516

PATIENT
  Sex: Female

DRUGS (6)
  1. ALENDRONATE SODIUM. [Suspect]
     Active Substance: ALENDRONATE SODIUM
     Indication: OSTEOPOROSIS
     Dosage: 70 MG, QW
     Route: 048
     Dates: start: 200812, end: 201203
  2. FOSAMAX [Suspect]
     Active Substance: ALENDRONATE SODIUM
     Indication: OSTEOPOROSIS
     Dosage: 70 MG, QW
     Route: 048
     Dates: start: 200101, end: 200804
  3. FOSAMAX [Suspect]
     Active Substance: ALENDRONATE SODIUM
     Dosage: 10 MG, UNK
     Route: 048
     Dates: start: 20050324
  4. CALCIUM (UNSPECIFIED) [Concomitant]
     Active Substance: CALCIUM
     Dosage: UNK, QD
     Dates: start: 1986
  5. VITAMINS (UNSPECIFIED) [Concomitant]
     Active Substance: VITAMINS
     Dosage: UNK, QD
     Dates: start: 1986
  6. VITAMIN D [Concomitant]
     Active Substance: CHOLECALCIFEROL
     Dosage: UNK, QD
     Dates: start: 1986

REACTIONS (25)
  - Colitis ischaemic [Unknown]
  - Osteoporosis [Not Recovered/Not Resolved]
  - Fracture nonunion [Unknown]
  - Hypertension [Unknown]
  - Impaired healing [Not Recovered/Not Resolved]
  - Thyroid neoplasm [Unknown]
  - Bone disorder [Not Recovered/Not Resolved]
  - Ligament sprain [Unknown]
  - Adverse event [Unknown]
  - Depression [Unknown]
  - Gastrooesophageal reflux disease [Unknown]
  - Bone disorder [Not Recovered/Not Resolved]
  - Device breakage [Unknown]
  - Stress fracture [Not Recovered/Not Resolved]
  - Hernia hiatus repair [Unknown]
  - Joint arthroplasty [Unknown]
  - Bone density decreased [Not Recovered/Not Resolved]
  - Inflammatory bowel disease [Unknown]
  - Removal of internal fixation [Unknown]
  - Limb asymmetry [Unknown]
  - Fall [Unknown]
  - Transfusion [Unknown]
  - Femur fracture [Not Recovered/Not Resolved]
  - Hyperlipidaemia [Unknown]
  - Obesity [Unknown]

NARRATIVE: CASE EVENT DATE: 200104
